FAERS Safety Report 10196547 (Version 1)
Quarter: 2014Q2

REPORT INFORMATION
  Report Type: Spontaneous
  Country: US (occurrence: US)
  Receive Date: 20140527
  Receipt Date: 20140527
  Transmission Date: 20141212
  Serious: Yes (Disabling)
  Sender: FDA-Public Use
  Company Number: US-SA-2014SA065710

PATIENT
  Age: 57 Year
  Sex: Male

DRUGS (2)
  1. AMARYL [Suspect]
     Indication: DIABETES MELLITUS
     Route: 065
     Dates: start: 2012
  2. JANUMET [Suspect]
     Indication: DIABETES MELLITUS
     Route: 065

REACTIONS (1)
  - Amnesia [Unknown]
